FAERS Safety Report 8109417 (Version 4)
Quarter: 2013Q4

REPORT INFORMATION
  Report Type: Spontaneous
  Country: US (occurrence: US)
  Receive Date: 20110826
  Receipt Date: 20131211
  Transmission Date: 20140711
  Serious: Yes (Hospitalization)
  Sender: FDA-Public Use
  Company Number: US-BAYER-2011-077319

PATIENT
  Age: 18 Year
  Sex: Female
  Weight: 57 kg

DRUGS (14)
  1. YASMIN [Suspect]
     Indication: CONTRACEPTION
     Dosage: UNK
     Dates: start: 20060128, end: 20091118
  2. YASMIN [Suspect]
     Indication: ACNE
  3. YASMIN [Suspect]
     Indication: OVARIAN CYST
  4. MICROGESTIN FE [Concomitant]
     Dosage: 1.5-30 MG-MCG
     Route: 048
     Dates: start: 200911, end: 201012
  5. KINEVAC [Concomitant]
     Dosage: 5 ?G, UNK
  6. HYDROCORTISONE [Concomitant]
     Route: 061
  7. DOXYCYCLIN [DOXYCYCLINE] [Concomitant]
     Indication: SKIN LESION
     Dosage: 100 MG, 1 TABLET QD
     Route: 048
  8. CARAFATE [Concomitant]
     Dosage: 100 MG/ML, 1 TEASPOONFUL
     Route: 048
  9. PROTONIX [Concomitant]
     Dosage: 40 MG, 1 TABLET, BID
     Route: 048
  10. METRONIDAZOLE [Concomitant]
     Dosage: 250 MG, 1 TABLET, QID
     Route: 048
  11. HYDROCODONE W/ACETAMINOPHEN [Concomitant]
     Dosage: 5-325 MG
     Route: 048
  12. ZOFRAN [Concomitant]
     Dosage: 4 MG, UNK
     Route: 042
  13. HYDROCORTISONE [Concomitant]
  14. MORPHINE [Concomitant]

REACTIONS (2)
  - Cholecystitis chronic [None]
  - Gallbladder disorder [None]
